FAERS Safety Report 4920058-0 (Version None)
Quarter: 2006Q1

REPORT INFORMATION
  Report Type: 
  Country: None (occurrence: None)
  Receive Date: 20060217
  Receipt Date: 20060210
  Transmission Date: 20060701
  Serious: Yes (Hospitalization)
  Sender: FDA-Public Use
  Company Number: 163-20785-05070337

PATIENT
  Age: 55 Year
  Sex: Male

DRUGS (2)
  1. THALOMID [Suspect]
     Indication: MULTIPLE MYELOMA
     Dosage: 200 MG, QHS, ORAL
     Route: 048
     Dates: start: 20050607
  2. VELCADE [Concomitant]

REACTIONS (6)
  - ASTHENIA [None]
  - DIABETES MELLITUS INADEQUATE CONTROL [None]
  - FLUID OVERLOAD [None]
  - GROIN PAIN [None]
  - NEPHROTIC SYNDROME [None]
  - OEDEMA PERIPHERAL [None]
